FAERS Safety Report 20208650 (Version 1)
Quarter: 2022Q1

REPORT INFORMATION
  Report Type: Spontaneous
  Country: None (occurrence: US)
  Receive Date: 20211220
  Receipt Date: 20211220
  Transmission Date: 20220424
  Serious: No
  Sender: FDA-Public Use
  Company Number: US-Matrixx Initiatives, Inc.-2123206

PATIENT
  Age: 31 Year
  Sex: Male
  Weight: 90.909 kg

DRUGS (1)
  1. HOMEOPATHICS [Suspect]
     Active Substance: HOMEOPATHICS
     Indication: Nasal congestion
     Route: 045
     Dates: start: 20211209, end: 20211210

REACTIONS (5)
  - Anosmia [None]
  - Ageusia [None]
  - Panic attack [None]
  - Nausea [None]
  - Vomiting [None]
